FAERS Safety Report 6316287-4 (Version None)
Quarter: 2009Q3

REPORT INFORMATION
  Report Type: 
  Country: None (occurrence: None)
  Receive Date: 20090820
  Receipt Date: 20090813
  Transmission Date: 20100115
  Serious: Yes (Death)
  Sender: FDA-Public Use
  Company Number: US-GILEAD-2009-0023664

PATIENT
  Sex: Female

DRUGS (12)
  1. LETAIRIS [Suspect]
     Indication: PULMONARY ARTERIAL HYPERTENSION
     Route: 048
     Dates: start: 20090312
  2. LASIX [Concomitant]
  3. COREG [Concomitant]
  4. AMIODARONE [Concomitant]
  5. ALDACTONE [Concomitant]
  6. ZAROXOLYN [Concomitant]
  7. IPRATR-ALBUTEROL [Concomitant]
  8. ALBUTEROL [Concomitant]
  9. ADVAIR HFA [Concomitant]
  10. APAP TAB [Concomitant]
  11. REQUIP [Concomitant]
  12. PREVACID [Concomitant]

REACTIONS (1)
  - DEATH [None]
